FAERS Safety Report 9687617 (Version 1)
Quarter: 2013Q4

REPORT INFORMATION
  Report Type: Spontaneous
  Country: US (occurrence: None)
  Receive Date: 20131113
  Receipt Date: 20131113
  Transmission Date: 20140711
  Serious: Yes (Life-Threatening, Hospitalization)
  Sender: FDA-Public Use
  Company Number: None

PATIENT
  Age: 61 Year
  Sex: Male

DRUGS (2)
  1. AFINITOR [Suspect]
     Indication: NEOPLASM MALIGNANT
     Route: 048
     Dates: start: 20130822
  2. LISINOPRIL [Suspect]

REACTIONS (2)
  - Anaphylactic reaction [None]
  - Respiratory distress [None]
